FAERS Safety Report 10902060 (Version 3)
Quarter: 2015Q1

REPORT INFORMATION
  Report Type: Spontaneous
  Country: IT (occurrence: IT)
  Receive Date: 20150310
  Receipt Date: 20150331
  Transmission Date: 20150721
  Serious: Yes (Hospitalization)
  Sender: FDA-Public Use
  Company Number: PHHY2015IT024160

PATIENT
  Sex: Male

DRUGS (8)
  1. ZOLPIDEM [Suspect]
     Active Substance: ZOLPIDEM\ZOLPIDEM TARTRATE
     Indication: DRUG ABUSE
     Dosage: 10 MG, QD
     Route: 048
     Dates: start: 20150209, end: 20150209
  2. KEPPRA [Suspect]
     Active Substance: LEVETIRACETAM
     Indication: DRUG ABUSE
     Dosage: 500 MG, QD
     Route: 048
     Dates: start: 20150209
  3. LASIX [Suspect]
     Active Substance: FUROSEMIDE
     Indication: DRUG ABUSE
     Dosage: 25 MG, QD
     Route: 048
     Dates: start: 20150209, end: 20150209
  4. XANAX [Suspect]
     Active Substance: ALPRAZOLAM
     Indication: DRUG ABUSE
     Dosage: 0.5 MG, BID
     Route: 048
     Dates: start: 20150209
  5. SIVASTIN [Suspect]
     Active Substance: SIMVASTATIN
     Indication: DRUG ABUSE
     Dosage: 20 MG, QD
     Route: 048
     Dates: start: 20150209
  6. LANSOPRAZOLE. [Suspect]
     Active Substance: LANSOPRAZOLE
     Indication: DRUG ABUSE
     Dosage: 15 MG, QD
     Route: 048
     Dates: start: 20150209, end: 20150209
  7. DILATREND [Suspect]
     Active Substance: CARVEDILOL
     Indication: DRUG ABUSE
     Dosage: 6.25 MG, BID
     Route: 048
     Dates: start: 20150209
  8. NORVASC [Suspect]
     Active Substance: AMLODIPINE BESYLATE
     Indication: DRUG ABUSE
     Dosage: 5 MG, QD
     Route: 048
     Dates: start: 20150209

REACTIONS (2)
  - Drug abuse [Recovered/Resolved]
  - Syncope [Recovered/Resolved]

NARRATIVE: CASE EVENT DATE: 20150209
